FAERS Safety Report 7810941-0 (Version None)
Quarter: 2011Q4

REPORT INFORMATION
  Report Type: 
  Country: None (occurrence: None)
  Receive Date: 20111013
  Receipt Date: 20111011
  Transmission Date: 20120403
  Serious: Yes (Other)
  Sender: FDA-Public Use
  Company Number: US-PFIZER INC-2011242801

PATIENT
  Age: 58 Year
  Sex: Female

DRUGS (2)
  1. EFFEXOR XR [Suspect]
     Dosage: 75 MG, UNK
     Route: 048
     Dates: start: 20050101, end: 20060101
  2. EFFEXOR XR [Suspect]
     Dosage: 225 MG, UNK
     Route: 048
     Dates: start: 20060101

REACTIONS (2)
  - HEART RATE INCREASED [None]
  - ARRHYTHMIA [None]
